FAERS Safety Report 8083163-9 (Version None)
Quarter: 2012Q1

REPORT INFORMATION
  Report Type: 
  Country: None (occurrence: None)
  Receive Date: 20120127
  Receipt Date: 20110213
  Transmission Date: 20120608
  Serious: No
  Sender: FDA-Public Use
  Company Number: US-ABBOTT-11P-163-0705226-00

PATIENT
  Age: 54 Year
  Sex: Male

DRUGS (32)
  1. REGULAR INSULIN [Concomitant]
     Indication: PRODUCT USED FOR UNKNOWN INDICATION
  2. SIMVASTATIN [Concomitant]
     Indication: PRODUCT USED FOR UNKNOWN INDICATION
  3. PRILOSEC [Concomitant]
     Indication: PRODUCT USED FOR UNKNOWN INDICATION
  4. TACROLIMUS [Concomitant]
     Indication: PRODUCT USED FOR UNKNOWN INDICATION
  5. SINGULAIR [Concomitant]
     Indication: PRODUCT USED FOR UNKNOWN INDICATION
  6. DRILIPIX CR [Concomitant]
     Indication: PRODUCT USED FOR UNKNOWN INDICATION
  7. ALLOPURINOL [Concomitant]
     Indication: PRODUCT USED FOR UNKNOWN INDICATION
     Dosage: 100 QD AND 300MG QD
  8. COQ10 [Concomitant]
     Indication: PRODUCT USED FOR UNKNOWN INDICATION
  9. CALCIUM +VIT D [Concomitant]
     Indication: PRODUCT USED FOR UNKNOWN INDICATION
     Dosage: AT BEDTIME
  10. METFFORMIN HYDROCHLORIDE [Concomitant]
     Indication: PRODUCT USED FOR UNKNOWN INDICATION
  11. FOLIC ACID [Concomitant]
     Indication: PRODUCT USED FOR UNKNOWN INDICATION
  12. OSTEO BI-FLEX [Concomitant]
     Indication: PRODUCT USED FOR UNKNOWN INDICATION
  13. TRIAMCINOLONE [Concomitant]
     Indication: PRODUCT USED FOR UNKNOWN INDICATION
     Dosage: TWICE DAILY AS NEEDED
  14. VIT C [Concomitant]
     Indication: PRODUCT USED FOR UNKNOWN INDICATION
  15. FOSAMAX PLUS D [Concomitant]
     Indication: PRODUCT USED FOR UNKNOWN INDICATION
     Dosage: 70/2800 IU WEEKLY
  16. ASPIRIN [Concomitant]
     Indication: PRODUCT USED FOR UNKNOWN INDICATION
     Dosage: LOW DOSE TWICE DAILY
  17. ADVAIR DISKUS 100/50 [Concomitant]
     Indication: PRODUCT USED FOR UNKNOWN INDICATION
     Dosage: DISC 250/50; 1 TWICE DAILY
  18. HYDROCODONE BITARTRATE [Concomitant]
     Indication: PRODUCT USED FOR UNKNOWN INDICATION
     Dosage: AS NEEDED
  19. SOMA [Concomitant]
     Indication: PRODUCT USED FOR UNKNOWN INDICATION
     Dosage: 1 AT BEDTIME
  20. VOLTAREN [Concomitant]
     Indication: PRODUCT USED FOR UNKNOWN INDICATION
     Dosage: GEL
  21. NASAL CORT [Concomitant]
     Indication: PRODUCT USED FOR UNKNOWN INDICATION
     Dosage: AS NEEDED
  22. HUMIRA [Suspect]
     Indication: PSORIATIC ARTHROPATHY
     Dates: start: 20101101
  23. ZANTAC [Concomitant]
     Indication: PRODUCT USED FOR UNKNOWN INDICATION
  24. MULTI-VITAMINS [Concomitant]
     Indication: PRODUCT USED FOR UNKNOWN INDICATION
     Dosage: MULTI-VIT DAILY
  25. PYRUVATE CALCUIM [Concomitant]
     Indication: PRODUCT USED FOR UNKNOWN INDICATION
  26. CHROMIUM PICULATE [Concomitant]
     Indication: PRODUCT USED FOR UNKNOWN INDICATION
  27. CRANBERRY [Concomitant]
     Indication: PRODUCT USED FOR UNKNOWN INDICATION
     Dosage: DAILY
  28. ALBUTEROL [Concomitant]
     Indication: PRODUCT USED FOR UNKNOWN INDICATION
     Dosage: 2 PUFF IN AM AND AT BEDTIME AND AS NEEDED
  29. LISINOPRIL [Concomitant]
     Indication: PRODUCT USED FOR UNKNOWN INDICATION
  30. ALPHALIPOIC ACID [Concomitant]
     Indication: PRODUCT USED FOR UNKNOWN INDICATION
  31. BENEFIBER [Concomitant]
     Indication: PRODUCT USED FOR UNKNOWN INDICATION
  32. CLOBEX [Concomitant]
     Indication: PRODUCT USED FOR UNKNOWN INDICATION

REACTIONS (5)
  - URTICARIA [None]
  - GENERALISED ERYTHEMA [None]
  - RASH MACULAR [None]
  - PRURITUS GENERALISED [None]
  - ILL-DEFINED DISORDER [None]
